FAERS Safety Report 5128655-7 (Version None)
Quarter: 2006Q4

REPORT INFORMATION
  Report Type: 
  Country: None (occurrence: None)
  Receive Date: 20061011
  Receipt Date: 20061002
  Transmission Date: 20070319
  Serious: Yes (Other)
  Sender: FDA-Public Use
  Company Number: 230215

PATIENT
  Sex: Male
  Weight: 80.3 kg

DRUGS (9)
  1. XOLAIR [Suspect]
     Indication: ASTHMA
     Dosage: 150 MG, Q2W, SUBCUTANEOUS
     Route: 058
     Dates: start: 20050528, end: 20060901
  2. ADVAIR DISKUS 100/50 [Concomitant]
  3. FLOVENT [Concomitant]
  4. NASONEX [Concomitant]
  5. COMBIVENT [Concomitant]
  6. ALBUTEROL (ALBUTEROL/ALBUTEROL SULFATE) [Concomitant]
  7. PROPECIA [Concomitant]
  8. LAMICTAL [Concomitant]
  9. PREDNISONE TAB [Concomitant]

REACTIONS (5)
  - ALLERGIC GRANULOMATOUS ANGIITIS [None]
  - DIARRHOEA [None]
  - FATIGUE [None]
  - HYPEREOSINOPHILIC SYNDROME [None]
  - MALAISE [None]
